FAERS Safety Report 4629893-X (Version None)
Quarter: 2005Q2

REPORT INFORMATION
  Report Type: 
  Country: None (occurrence: None)
  Receive Date: 20050406
  Receipt Date: 20050317
  Transmission Date: 20051028
  Serious: Yes (Other)
  Sender: FDA-Public Use
  Company Number: CA_050307879

PATIENT
  Sex: Female

DRUGS (1)
  1. XIGRIS [Suspect]
     Indication: SEPSIS
     Dates: end: 20050317

REACTIONS (1)
  - MYOCARDIAL INFARCTION [None]
